FAERS Safety Report 26142795 (Version 1)
Quarter: 2025Q4

REPORT INFORMATION
  Report Type: Spontaneous
  Country: US (occurrence: US)
  Receive Date: 20251211
  Receipt Date: 20251211
  Transmission Date: 20260118
  Serious: Yes (Other)
  Sender: DR REDDYS
  Company Number: US-DRL-USA-USA/2025/12/018839

PATIENT
  Age: 36 Year
  Sex: Male

DRUGS (2)
  1. DESMOPRESSIN [Suspect]
     Active Substance: DESMOPRESSIN
     Indication: Diabetes insipidus
     Route: 042
  2. DEXTROSE, UNSPECIFIED FORM [Concomitant]
     Active Substance: DEXTROSE, UNSPECIFIED FORM
     Indication: Diabetes insipidus
     Route: 042

REACTIONS (2)
  - Overdose [Unknown]
  - Hyponatraemia [Unknown]
